FAERS Safety Report 6644863-8 (Version None)
Quarter: 2010Q1

REPORT INFORMATION
  Report Type: 
  Country: None (occurrence: None)
  Receive Date: 20100322
  Receipt Date: 20100312
  Transmission Date: 20100710
  Serious: Yes (Hospitalization)
  Sender: FDA-Public Use
  Company Number: US-ABBOTT-10P-163-0632085-00

PATIENT
  Sex: Female
  Weight: 47.216 kg

DRUGS (4)
  1. HUMIRA [Suspect]
     Indication: CROHN'S DISEASE
     Dates: start: 20080101, end: 20090401
  2. HUMIRA [Suspect]
     Dates: start: 20090401, end: 20090401
  3. HUMIRA [Suspect]
     Route: 058
     Dates: start: 20100108, end: 20100305
  4. HUMIRA [Suspect]
     Dates: start: 20100305

REACTIONS (8)
  - ABDOMINAL PAIN [None]
  - BLOOD MAGNESIUM DECREASED [None]
  - BLOOD POTASSIUM DECREASED [None]
  - CROHN'S DISEASE [None]
  - DIARRHOEA [None]
  - DRUG INEFFECTIVE [None]
  - LOWER RESPIRATORY TRACT INFECTION [None]
  - WEIGHT DECREASED [None]
